FAERS Safety Report 7776871-8 (Version None)
Quarter: 2011Q3

REPORT INFORMATION
  Report Type: 
  Country: None (occurrence: None)
  Receive Date: 20110926
  Receipt Date: 20110909
  Transmission Date: 20111222
  Serious: Yes (Hospitalization)
  Sender: FDA-Public Use
  Company Number: US-BAYER-201036935NA

PATIENT
  Age: 32 Year
  Sex: Female
  Weight: 86.168 kg

DRUGS (3)
  1. CYMBALTA [Concomitant]
     Indication: SEASONAL AFFECTIVE DISORDER
     Dosage: UNK
     Dates: start: 20080501, end: 20081201
  2. YASMIN [Suspect]
     Indication: PREMENSTRUAL SYNDROME
     Dosage: UNK
     Route: 048
     Dates: start: 20060801
  3. YASMIN [Suspect]
     Dosage: UNK
     Dates: start: 20081212, end: 20090124

REACTIONS (3)
  - PNEUMOTHORAX [None]
  - PULMONARY EMBOLISM [None]
  - CONTUSION [None]
